FAERS Safety Report 8065536-3 (Version None)
Quarter: 2011Q4

REPORT INFORMATION
  Report Type: 
  Country: None (occurrence: None)
  Receive Date: 20111221
  Receipt Date: 20110111
  Transmission Date: 20120403
  Serious: Yes (Death, Hospitalization)
  Sender: FDA-Public Use
  Company Number: PHHY2011US02557

PATIENT
  Sex: Female
  Weight: 68 kg

DRUGS (2)
  1. REVLIMID (LENALDIOMIDE) [Concomitant]
  2. EXJADE [Suspect]
     Indication: MYELODYSPLASTIC SYNDROME
     Dosage: 1250 MG, QD, ORAL
     Route: 048
     Dates: start: 20100708, end: 20101203

REACTIONS (3)
  - ANAEMIA [None]
  - NEOPLASM MALIGNANT [None]
  - ACUTE MYELOID LEUKAEMIA [None]
